FAERS Safety Report 8160066-2 (Version None)
Quarter: 2012Q1

REPORT INFORMATION
  Report Type: 
  Country: None (occurrence: None)
  Receive Date: 20120223
  Receipt Date: 20120221
  Transmission Date: 20120608
  Serious: No
  Sender: FDA-Public Use
  Company Number: US-BAYER-2012-017380

PATIENT
  Sex: Female
  Weight: 72 kg

DRUGS (16)
  1. KLONOPIN [Concomitant]
  2. AMPYRA [Concomitant]
  3. TRAZODONE HCL [Suspect]
     Dosage: UNK
     Dates: start: 20111001, end: 20110101
  4. MELATONIN [Concomitant]
  5. BETASERON [Suspect]
     Dosage: 0.25 MG, QOD
     Route: 058
     Dates: start: 19930101
  6. FLAX SEED OIL [Concomitant]
  7. CALCIUM CITRATE W/VITAMIN D NOS [Concomitant]
  8. ACETAMINOPHEN [Concomitant]
  9. TURMERIC [Concomitant]
  10. NIACIN [Concomitant]
  11. ASPIRIN [Concomitant]
  12. LEVOTHYROXINE SODIUM [Concomitant]
  13. WELLBUTRIN [Concomitant]
  14. VITAMIN D [Concomitant]
  15. MULTIPLE VITAMINS [Concomitant]
  16. LOVAZA [Concomitant]

REACTIONS (3)
  - ASTHENIA [None]
  - INFLUENZA LIKE ILLNESS [None]
  - GAIT DISTURBANCE [None]
